FAERS Safety Report 8926165 (Version 3)
Quarter: 2013Q4

REPORT INFORMATION
  Report Type: Spontaneous
  Country: US (occurrence: US)
  Receive Date: 20121126
  Receipt Date: 20131219
  Transmission Date: 20140711
  Serious: Yes (Hospitalization, Other)
  Sender: FDA-Public Use
  Company Number: US-BAYER-2012-121398

PATIENT
  Age: 27 Year
  Sex: Female
  Weight: 65.76 kg

DRUGS (14)
  1. OCELLA [Suspect]
     Indication: CONTRACEPTION
     Dosage: UNK
     Dates: start: 20090302, end: 201005
  2. PROPOXYPHENE NAPSYLATE W/ACETAMINOPHENE [Concomitant]
     Indication: PAIN
     Dosage: 100-65 TAB ONE Q 6 HRS
     Route: 048
  3. CLONAZEPAM [Concomitant]
     Indication: SLEEP DISORDER
     Dosage: 1 MG,3 DAILY
     Route: 048
  4. CLONAZEPAM [Concomitant]
     Indication: ANXIETY
  5. DIAZEPAM [Concomitant]
     Dosage: 5 MG, UNK
     Route: 048
  6. HYDROCODONE W/APAP [Concomitant]
     Dosage: 7.5 MG, 500 TAB
     Route: 048
  7. ONDANSETRON [Concomitant]
     Dosage: 4 MG, UNK
     Route: 048
  8. HYDROXYZINE [Concomitant]
     Dosage: 50 MG, UNK
     Route: 048
  9. MEPERIDINE [Concomitant]
     Dosage: 50 MG, UNK
     Route: 048
  10. PROMETHAZINE [Concomitant]
     Dosage: 25 MG, UNK
     Route: 048
  11. BUPAP [Concomitant]
     Dosage: UNK
     Dates: start: 2008
  12. VITAMIN C [Concomitant]
     Dosage: UNK
     Dates: start: 2000
  13. LEXAPRO [Concomitant]
     Dosage: 10 MG, DAILY
  14. AMBIEN [Concomitant]
     Dosage: 10 MG, HS

REACTIONS (6)
  - Gallbladder injury [None]
  - Biliary dyskinesia [None]
  - Cholecystitis chronic [None]
  - Pain [None]
  - Injury [None]
  - Abdominal pain [None]
